FAERS Safety Report 9889115 (Version 2)
Quarter: 2014Q1

REPORT INFORMATION
  Report Type: Spontaneous
  Country: US (occurrence: CA)
  Receive Date: 20140211
  Receipt Date: 20140307
  Transmission Date: 20141002
  Serious: Yes (Death, Hospitalization)
  Sender: FDA-Public Use
  Company Number: CA-FRI-1000054078

PATIENT
  Age: 83 Year
  Sex: Male

DRUGS (1)
  1. ROFLUMILAST [Suspect]
     Dosage: 500 MCG
     Route: 048
     Dates: start: 201312

REACTIONS (2)
  - Death [Fatal]
  - Respiratory tract congestion [Unknown]
